FAERS Safety Report 6929801-2 (Version None)
Quarter: 2010Q3

REPORT INFORMATION
  Report Type: 
  Country: None (occurrence: None)
  Receive Date: 20100818
  Receipt Date: 20100811
  Transmission Date: 20110219
  Serious: Yes (Life-Threatening, Hospitalization)
  Sender: FDA-Public Use
  Company Number: FR-MPIJNJ-2010-00956

PATIENT

DRUGS (24)
  1. VELCADE [Suspect]
     Indication: MULTIPLE MYELOMA
     Dosage: 2.35 MG, UNK
     Route: 065
     Dates: start: 20090420, end: 20090522
  2. MELPHALAN [Concomitant]
     Indication: MULTIPLE MYELOMA
     Dosage: 16 MG, UNK
     Route: 048
     Dates: start: 20090420, end: 20090423
  3. DEXAMETHASONE [Concomitant]
     Indication: MULTIPLE MYELOMA
     Dosage: 20 MG, UNK
     Route: 048
     Dates: start: 20090420, end: 20090522
  4. CLOPIDOGREL [Concomitant]
     Dosage: UNK
     Route: 048
  5. AMLODIPINE [Concomitant]
     Dosage: UNK
     Route: 048
     Dates: end: 20090615
  6. ADANCOR [Concomitant]
     Dosage: UNK
     Dates: end: 20090615
  7. ATORVASTATIN [Concomitant]
     Dosage: UNK
     Route: 048
     Dates: end: 20090615
  8. MORPHINE [Concomitant]
     Dosage: UNK
  9. PERMIXON                           /00833501/ [Concomitant]
     Dosage: UNK
     Dates: end: 20090615
  10. COAPROVEL [Concomitant]
     Dosage: UNK
     Dates: end: 20090615
  11. AMIODARONE [Concomitant]
     Dosage: UNK
     Route: 048
  12. PREVISCAN                          /00789001/ [Concomitant]
     Dosage: UNK
     Dates: end: 20090501
  13. OMEPRAZOLE [Concomitant]
     Dosage: UNK
     Route: 048
     Dates: end: 20090419
  14. INSULIN [Concomitant]
     Dosage: UNK
     Route: 058
  15. LACTULOSE [Concomitant]
     Dosage: UNK
     Route: 048
     Dates: start: 20090420, end: 20090429
  16. MACROGOL [Concomitant]
     Dosage: UNK
     Route: 048
     Dates: start: 20090430, end: 20090527
  17. LIDOCAINE [Concomitant]
     Dosage: UNK
     Dates: start: 20090430, end: 20090527
  18. CEFTRIAXONE [Concomitant]
     Dosage: UNK
     Route: 042
     Dates: start: 20090501, end: 20090523
  19. CIPROFLOXACIN [Concomitant]
     Dosage: UNK
     Route: 042
     Dates: start: 20090501, end: 20090513
  20. PARACETAMOL [Concomitant]
     Dosage: UNK
     Route: 048
     Dates: start: 20090501
  21. STABLON                            /00956301/ [Concomitant]
     Dosage: UNK
     Dates: start: 20090501, end: 20090615
  22. LEXOMIL [Concomitant]
     Dosage: UNK
     Dates: start: 20090501, end: 20090615
  23. TRAMADOL [Concomitant]
     Dosage: UNK
     Route: 048
     Dates: start: 20090506, end: 20090523
  24. HEPARIN [Concomitant]
     Dosage: UNK
     Route: 042
     Dates: start: 20090525, end: 20090615

REACTIONS (5)
  - GASTROINTESTINAL DISORDER [None]
  - LYMPHOPENIA [None]
  - MYOCARDIAL INFARCTION [None]
  - PNEUMONIA [None]
  - THROMBOCYTOPENIA [None]
